FAERS Safety Report 5873148-2 (Version None)
Quarter: 2008Q3

REPORT INFORMATION
  Report Type: 
  Country: None (occurrence: None)
  Receive Date: 20080908
  Receipt Date: 20080826
  Transmission Date: 20090109
  Serious: Yes (Other)
  Sender: FDA-Public Use
  Company Number: US-JNJFOC-20080806314

PATIENT
  Age: 56 Year
  Sex: Female
  Weight: 53.98 kg

DRUGS (4)
  1. TOPAMAX [Suspect]
     Indication: MIGRAINE PROPHYLAXIS
  2. XANAX [Concomitant]
  3. LEXAPRO [Concomitant]
  4. PAMALOR [Concomitant]
     Indication: DRUG USE FOR UNKNOWN INDICATION

REACTIONS (2)
  - RETINAL DETACHMENT [None]
  - VITREOUS DETACHMENT [None]
